FAERS Safety Report 6273725-3 (Version None)
Quarter: 2009Q3

REPORT INFORMATION
  Report Type: 
  Country: None (occurrence: None)
  Receive Date: 20090720
  Receipt Date: 20090710
  Transmission Date: 20100115
  Serious: Yes (Other)
  Sender: FDA-Public Use
  Company Number: US-TYCO HEALTHCARE/MALLINCKRODT-T200900735

PATIENT
  Sex: Female

DRUGS (11)
  1. OPTIMARK [Suspect]
     Indication: NUCLEAR MAGNETIC RESONANCE IMAGING BRAIN
     Dosage: 20 ML (CC), SINGLE (OPTIMARK OR MAGNEVIST)
     Route: 042
     Dates: start: 20070607, end: 20070607
  2. MAGNEVIST [Suspect]
     Indication: NUCLEAR MAGNETIC RESONANCE IMAGING
     Dosage: UNK
     Route: 042
     Dates: start: 20070223, end: 20070223
  3. COZAAR [Concomitant]
     Indication: BLOOD PRESSURE
     Dosage: UNK
     Dates: start: 20070101
  4. SENSIPAR [Concomitant]
     Indication: DIALYSIS
     Dosage: 90 MG, UNK
  5. RENAGEL                            /01459901/ [Concomitant]
     Indication: DIALYSIS
     Dosage: 800 MG, UNK
  6. OXYCONTIN [Concomitant]
     Indication: PAIN
     Dosage: UNK
     Dates: start: 20070101
  7. PREDNISONE [Concomitant]
     Indication: PAIN
     Dosage: UNK
     Dates: start: 20080101
  8. IRON [Concomitant]
     Indication: SUPPLEMENTATION THERAPY
  9. VITAMINS                           /90003601/ [Concomitant]
  10. CARDIAC THERAPY [Concomitant]
  11. BLOOD THINNER [Concomitant]

REACTIONS (2)
  - ARRHYTHMIA [None]
  - NEPHROGENIC SYSTEMIC FIBROSIS [None]
